FAERS Safety Report 16778751 (Version 1)
Quarter: 2019Q3

REPORT INFORMATION
  Report Type: Spontaneous
  Country: US (occurrence: US)
  Receive Date: 20190906
  Receipt Date: 20190906
  Transmission Date: 20191005
  Serious: Yes (Hospitalization, Other)
  Sender: FDA-Public Use
  Company Number: US-ROCHE-2398084

PATIENT
  Sex: Female

DRUGS (1)
  1. RITUXAN [Suspect]
     Active Substance: RITUXIMAB
     Indication: CRYOGLOBULINAEMIA
     Dosage: 1GM AT DAY 1 AND 1GM AT DAY 15 ;ONGOING: NO
     Route: 042

REACTIONS (5)
  - Loss of consciousness [Recovered/Resolved]
  - Haemorrhage [Recovering/Resolving]
  - Intentional product use issue [Unknown]
  - Dizziness [Unknown]
  - Off label use [Unknown]
